FAERS Safety Report 6057558-9 (Version None)
Quarter: 2009Q1

REPORT INFORMATION
  Report Type: 
  Country: None (occurrence: None)
  Receive Date: 20090126
  Receipt Date: 20090116
  Transmission Date: 20090719
  Serious: Yes (Hospitalization)
  Sender: FDA-Public Use
  Company Number: US025301

PATIENT

DRUGS (2)
  1. PROVIGIL [Suspect]
     Dosage: ORAL
     Route: 048
  2. ... [Concomitant]

REACTIONS (1)
  - CEREBRAL HAEMORRHAGE [None]
